FAERS Safety Report 7883279-3 (Version None)
Quarter: 2011Q4

REPORT INFORMATION
  Report Type: 
  Country: None (occurrence: None)
  Receive Date: 20111102
  Receipt Date: 20111025
  Transmission Date: 20120403
  Serious: Yes (Hospitalization)
  Sender: FDA-Public Use
  Company Number: US-US-EMD SERONO, INC.-7091944

PATIENT
  Sex: Female

DRUGS (4)
  1. BACLOFEN [Concomitant]
  2. FLEXERIL [Concomitant]
     Dates: end: 20111001
  3. REBIF [Suspect]
     Indication: MULTIPLE SCLEROSIS
     Route: 058
     Dates: start: 20110603
  4. LEXAPRO [Concomitant]

REACTIONS (3)
  - SUICIDAL IDEATION [None]
  - DEPRESSION [None]
  - PAIN [None]
